FAERS Safety Report 10065592 (Version 1)
Quarter: 2014Q2

REPORT INFORMATION
  Report Type: Spontaneous
  Country: US (occurrence: US)
  Receive Date: 20140408
  Receipt Date: 20140408
  Transmission Date: 20141212
  Serious: Yes (Hospitalization)
  Sender: FDA-Public Use
  Company Number: US-SA-2013SA108546

PATIENT
  Age: 58 Year
  Sex: Male
  Weight: 147 kg

DRUGS (2)
  1. ELITEK [Suspect]
     Route: 065
     Dates: start: 20130628, end: 20130628
  2. ELITEK [Suspect]
     Route: 065

REACTIONS (2)
  - Infusion related reaction [Recovered/Resolved]
  - Dyspnoea [Recovered/Resolved]
